FAERS Safety Report 6924979-9 (Version None)
Quarter: 2010Q3

REPORT INFORMATION
  Report Type: 
  Country: None (occurrence: None)
  Receive Date: 20100816
  Receipt Date: 20100804
  Transmission Date: 20110219
  Serious: Yes (Other)
  Sender: FDA-Public Use
  Company Number: US-AMGEN-TCS424239

PATIENT
  Sex: Female

DRUGS (1)
  1. ENBREL [Suspect]
     Indication: RHEUMATOID ARTHRITIS
     Route: 058
     Dates: start: 20080501

REACTIONS (8)
  - CONCUSSION [None]
  - CONTUSION [None]
  - DISORIENTATION [None]
  - FALL [None]
  - HALLUCINATION [None]
  - SKIN INJURY [None]
  - SUTURE INSERTION [None]
  - URINARY TRACT INFECTION [None]
